FAERS Safety Report 7480589-9 (Version None)
Quarter: 2011Q2

REPORT INFORMATION
  Report Type: 
  Country: None (occurrence: None)
  Receive Date: 20110504
  Receipt Date: 20110419
  Transmission Date: 20111010
  Serious: Yes (Hospitalization)
  Sender: FDA-Public Use
  Company Number: DSA_45358_2011

PATIENT
  Age: 77 Year
  Sex: Female

DRUGS (7)
  1. ENALAPRIL MALEATE [Suspect]
     Indication: PRODUCT USED FOR UNKNOWN INDICATION
     Dosage: DF, ORAL
     Route: 048
     Dates: start: 20100203, end: 20110114
  2. APIXABAN [Suspect]
     Indication: THROMBOSIS PROPHYLAXIS
     Dosage: 10 MG QDORAL, 10 MG QD, ORAL; 10 MG QD ORAL
     Route: 048
     Dates: start: 20101220, end: 20110114
  3. APIXABAN [Suspect]
     Indication: THROMBOSIS PROPHYLAXIS
     Dosage: 10 MG QDORAL, 10 MG QD, ORAL; 10 MG QD ORAL
     Route: 048
     Dates: start: 20091102, end: 20101211
  4. APIXABAN [Suspect]
     Indication: THROMBOSIS PROPHYLAXIS
     Dosage: 10 MG QDORAL, 10 MG QD, ORAL; 10 MG QD ORAL
     Route: 048
     Dates: start: 20110116
  5. WARFARIN SODIUM [Suspect]
     Indication: THROMBOSIS PROPHYLAXIS
     Dosage: 24 MG 1X/WEEK, ORAL; 24 MG 1X/WEEK ORAL;  24 MG 1X/WEEK ORAL
     Route: 048
     Dates: start: 20110116
  6. WARFARIN SODIUM [Suspect]
     Indication: THROMBOSIS PROPHYLAXIS
     Dosage: 24 MG 1X/WEEK, ORAL; 24 MG 1X/WEEK ORAL;  24 MG 1X/WEEK ORAL
     Route: 048
     Dates: start: 20091102, end: 20101211
  7. WARFARIN SODIUM [Suspect]
     Indication: THROMBOSIS PROPHYLAXIS
     Dosage: 24 MG 1X/WEEK, ORAL; 24 MG 1X/WEEK ORAL;  24 MG 1X/WEEK ORAL
     Route: 048
     Dates: start: 20101220, end: 20110114

REACTIONS (10)
  - ASTHENIA [None]
  - BACK PAIN [None]
  - MICROCYTIC ANAEMIA [None]
  - DIVERTICULITIS [None]
  - HYPERKALAEMIA [None]
  - HAEMOGLOBIN DECREASED [None]
  - RENAL COLIC [None]
  - RENAL FAILURE CHRONIC [None]
  - DIZZINESS [None]
  - CALCULUS URINARY [None]
